APPROVED DRUG PRODUCT: ALPHAGAN P
Active Ingredient: BRIMONIDINE TARTRATE
Strength: 0.1%
Dosage Form/Route: SOLUTION/DROPS;OPHTHALMIC
Application: N021770 | Product #001 | TE Code: AB
Applicant: ABBVIE INC
Approved: Aug 19, 2005 | RLD: Yes | RS: Yes | Type: RX